FAERS Safety Report 14531898 (Version 1)
Quarter: 2018Q1

REPORT INFORMATION
  Report Type: Spontaneous
  Country: SE (occurrence: SE)
  Receive Date: 20180214
  Receipt Date: 20180214
  Transmission Date: 20180509
  Serious: Yes (Hospitalization, Other)
  Sender: FDA-Public Use
  Company Number: SE-BAUSCH-BL-2018-004127

PATIENT
  Age: 64 Year
  Sex: Female
  Weight: 73 kg

DRUGS (16)
  1. OMEPRAZOLE. [Concomitant]
     Active Substance: OMEPRAZOLE
     Indication: PROPHYLAXIS
     Route: 048
     Dates: start: 20160126
  2. PANODIL [Concomitant]
     Active Substance: ACETAMINOPHEN
     Indication: PROPHYLAXIS
     Dosage: 1 IN 1 AS NECESSARY
     Route: 048
  3. VISCOTEARS [Concomitant]
     Active Substance: CARBOMER
     Indication: PROPHYLAXIS
     Dosage: 1 IN 1 AS NECESSARY
     Route: 047
  4. DEXAMETHASONE. [Suspect]
     Active Substance: DEXAMETHASONE
     Indication: PLASMA CELL MYELOMA
     Dosage: 1 WEEK
     Route: 048
     Dates: start: 20160126
  5. INNOHEP [Concomitant]
     Active Substance: TINZAPARIN SODIUM
     Indication: PROPHYLAXIS
     Route: 058
     Dates: start: 20160126
  6. IMOVANE [Concomitant]
     Active Substance: ZOPICLONE
     Indication: PROPHYLAXIS
     Dosage: 1 IN 1 AS NECESSARY
     Route: 048
  7. FENURIL [Concomitant]
     Indication: PROPHYLAXIS
     Dosage: 1 IN 1 AS NECESSARY
     Route: 061
  8. DENTAN [Concomitant]
     Active Substance: SODIUM FLUORIDE
     Indication: PROPHYLAXIS
     Dosage: 1 IN 1 AS NECESSARY
     Route: 065
  9. ARTELAC REBALANCE [Concomitant]
     Indication: PROPHYLAXIS
     Dosage: 1 IN 1 AS NECESSARY
     Route: 047
  10. SULFAMETHOXAZOLE [Concomitant]
     Active Substance: SULFAMETHOXAZOLE
     Indication: PROPHYLAXIS
     Route: 048
     Dates: start: 20160126
  11. REVLIMID [Suspect]
     Active Substance: LENALIDOMIDE
     Indication: PLASMA CELL MYELOMA
     Route: 048
     Dates: start: 20160126, end: 20160204
  12. ADALAT [Concomitant]
     Active Substance: NIFEDIPINE
     Indication: HYPERTENSION
     Route: 048
     Dates: start: 20100316
  13. PEPPERMINT INDIGESTION [Concomitant]
     Indication: PROPHYLAXIS
     Dosage: 1 IN 1 AS NECESSARY
     Route: 065
  14. OXASCAND [Concomitant]
     Active Substance: OXAZEPAM
     Indication: PROPHYLAXIS
     Dosage: 1 IN 1 AS NECESSARY
     Route: 065
  15. HYPROMELLOSE [Concomitant]
     Active Substance: HYPROMELLOSES
     Indication: PROPHYLAXIS
     Route: 065
  16. PROPAVAN [Concomitant]
     Active Substance: PROPIOMAZINE
     Indication: PROPHYLAXIS
     Dosage: 1 IN 1 AS NECESSARY
     Route: 048

REACTIONS (4)
  - Neutropenia [Recovered/Resolved]
  - Stomatitis [Recovered/Resolved]
  - Oral mucosal blistering [Recovered/Resolved]
  - Pyrexia [Recovered/Resolved]

NARRATIVE: CASE EVENT DATE: 20160205
